FAERS Safety Report 8922912 (Version 1)
Quarter: 2012Q4

REPORT INFORMATION
  Report Type: Spontaneous
  Country: IT (occurrence: None)
  Receive Date: 20121109
  Receipt Date: 20121109
  Transmission Date: 20130627
  Serious: Yes (Hospitalization)
  Sender: FDA-Public Use
  Company Number: 2012S1000469

PATIENT
  Age: 32 Year
  Sex: Male

DRUGS (2)
  1. CUBICIN [Suspect]
     Indication: OSTEOMYELITIS
     Route: 042
     Dates: start: 20120421, end: 20120517
  2. INVANZ [Concomitant]

REACTIONS (2)
  - Hyperpyrexia [None]
  - Tremor [None]
